FAERS Safety Report 10504028 (Version 2)
Quarter: 2014Q4

REPORT INFORMATION
  Report Type: Spontaneous
  Country: US (occurrence: US)
  Receive Date: 20141008
  Receipt Date: 20141008
  Transmission Date: 20150528
  Serious: No
  Sender: FDA-Public Use
  Company Number: US-BEH-2013037132

PATIENT
  Sex: Female
  Weight: 58 kg

DRUGS (20)
  1. VENTOLIN HFA [Concomitant]
     Active Substance: ALBUTEROL SULFATE
     Indication: DYSPNOEA
     Dosage: 2-4 PUFFS Q 4 HOURS
  2. PRIVIGEN [Suspect]
     Active Substance: HUMAN IMMUNOGLOBULIN G
     Indication: IMMUNODEFICIENCY COMMON VARIABLE
     Dosage: ??-MAY-2013
     Route: 042
  3. ALPRAZOLAM. [Concomitant]
     Active Substance: ALPRAZOLAM
     Indication: SLEEP DISORDER
  4. REZIRA [Concomitant]
     Active Substance: HYDROCODONE BITARTRATE\PSEUDOEPHEDRINE HYDROCHLORIDE
     Dosage: 1/2- 1SOLUTION TID
  5. VENTOLIN HFA [Concomitant]
     Active Substance: ALBUTEROL SULFATE
     Indication: DYSPNOEA
     Dosage: 2-4 PUFFS Q 4 HOURS
  6. LIVALO [Concomitant]
     Active Substance: PITAVASTATIN CALCIUM
  7. CARDIZEM CD [Concomitant]
     Active Substance: DILTIAZEM HYDROCHLORIDE
  8. FROVA [Concomitant]
     Active Substance: FROVATRIPTAN SUCCINATE
     Dosage: AT ONSET OF HA, MAY REPEAT IN 2 HR X 1
  9. MUCINEX [Concomitant]
     Active Substance: GUAIFENESIN
     Dosage: PRN
  10. XOPENEX [Concomitant]
     Active Substance: LEVALBUTEROL HYDROCHLORIDE
     Dosage: 1.25MG/ 3ML; 1 VIAL QID
  11. ZOFRAN [Concomitant]
     Active Substance: ONDANSETRON HYDROCHLORIDE
     Dosage: 1 Q 6-8 HOURS
     Route: 048
  12. EPIPEN [Concomitant]
     Active Substance: EPINEPHRINE
     Dosage: 0.3MG/0.3ML USE AS DIRECTED
  13. NASACORT AQ [Concomitant]
     Active Substance: TRIAMCINOLONE ACETONIDE
     Dosage: 2 SPRAYS EACH NOSTRIL
  14. ZIPSOR [Concomitant]
     Active Substance: DICLOFENAC POTASSIUM
     Dosage: 1 QID
  15. DIFLUCAN [Concomitant]
     Active Substance: FLUCONAZOLE
  16. OPTIVAR [Concomitant]
     Active Substance: AZELASTINE HYDROCHLORIDE
     Dosage: 0.05% 1 GGT OU PRN
  17. XYZAL [Concomitant]
     Active Substance: LEVOCETIRIZINE DIHYDROCHLORIDE
     Dosage: 1 QD
  18. PROAIR HFA [Concomitant]
     Active Substance: ALBUTEROL SULFATE
     Dosage: 1 PUFF
  19. RELPAX [Concomitant]
     Active Substance: ELETRIPTAN HYDROBROMIDE
     Dosage: 1 AT HA ONSET, MAY REPEAT IN 2 HRS MZX 2 IN 24 HOURS
  20. TESSALON [Concomitant]
     Active Substance: BENZONATATE
     Route: 048

REACTIONS (8)
  - Pyrexia [Unknown]
  - Laboratory test abnormal [Unknown]
  - Dyspnoea [Unknown]
  - Headache [Unknown]
  - Alpha 1 foetoprotein abnormal [Unknown]
  - Fatigue [Unknown]
  - Pain [Unknown]
  - Cough [Unknown]

NARRATIVE: CASE EVENT DATE: 2013
